FAERS Safety Report 11863731 (Version 2)
Quarter: 2016Q1

REPORT INFORMATION
  Report Type: Report from Study
  Country: CO (occurrence: CO)
  Receive Date: 20151223
  Receipt Date: 20160201
  Transmission Date: 20160526
  Serious: Yes (Other)
  Sender: FDA-Public Use
  Company Number: PHHY2015CO053258

PATIENT
  Age: 59 Year
  Sex: Female
  Weight: 64 kg

DRUGS (8)
  1. AFINITOR [Suspect]
     Active Substance: EVEROLIMUS
     Indication: METASTASES TO NECK
  2. AFINITOR [Suspect]
     Active Substance: EVEROLIMUS
     Indication: RENAL CANCER
     Dosage: 10 MG, QD
     Route: 065
     Dates: start: 20150404
  3. AFINITOR [Suspect]
     Active Substance: EVEROLIMUS
     Indication: BREAST CANCER
  4. AFINITOR [Suspect]
     Active Substance: EVEROLIMUS
     Indication: METASTASES TO THYROID
  5. PENICILLIN [Suspect]
     Active Substance: PENICILLIN
     Indication: PRODUCT USED FOR UNKNOWN INDICATION
     Route: 065
  6. EXEMESTANE. [Concomitant]
     Active Substance: EXEMESTANE
     Indication: PRODUCT USED FOR UNKNOWN INDICATION
     Dosage: 25 MG, UNK
     Route: 065
  7. AFINITOR [Suspect]
     Active Substance: EVEROLIMUS
     Indication: METASTASES TO LYMPH NODES
  8. AFINITOR [Suspect]
     Active Substance: EVEROLIMUS
     Indication: METASTASES TO CENTRAL NERVOUS SYSTEM

REACTIONS (19)
  - Lung neoplasm malignant [Unknown]
  - Blood thyroid stimulating hormone decreased [Unknown]
  - Drug hypersensitivity [Unknown]
  - Pyrexia [Unknown]
  - Eating disorder [Not Recovered/Not Resolved]
  - Skin depigmentation [Unknown]
  - Dyspnoea [Unknown]
  - Influenza [Unknown]
  - Inflammation [Unknown]
  - Rash generalised [Unknown]
  - Vocal cord paralysis [Unknown]
  - Dysphonia [Unknown]
  - Glossitis [Unknown]
  - Second primary malignancy [Unknown]
  - Chikungunya virus infection [Unknown]
  - Hair disorder [Unknown]
  - Acne [Unknown]
  - Pneumonia [Unknown]
  - Haemorrhoids [Unknown]

NARRATIVE: CASE EVENT DATE: 20151205
